FAERS Safety Report 8781841 (Version 2)
Quarter: 2012Q4

REPORT INFORMATION
  Report Type: 
  Country: US (occurrence: US)
  Receive Date: 20120913
  Receipt Date: 20121231
  Transmission Date: 20130627
  Serious: Yes (Hospitalization)
  Sender: FDA-Public Use
  Company Number: US-009507513-1209USA002342

PATIENT
  Age: 46 Year
  Sex: Female

DRUGS (3)
  1. SAPHRIS [Suspect]
     Indication: BIPOLAR I DISORDER
     Dosage: 5 mg, UNK
     Route: 048
     Dates: start: 20120717, end: 20120719
  2. XANAX [Concomitant]
  3. TRAZODONE HYDROCHLORIDE [Concomitant]

REACTIONS (3)
  - Dystonia [Recovering/Resolving]
  - Muscle spasms [Recovering/Resolving]
  - Incorrect route of drug administration [Unknown]
